FAERS Safety Report 6668945-X (Version None)
Quarter: 2010Q2

REPORT INFORMATION
  Report Type: 
  Country: None (occurrence: None)
  Receive Date: 20100402
  Receipt Date: 20100318
  Transmission Date: 20101027
  Serious: Yes (Hospitalization, Other)
  Sender: FDA-Public Use
  Company Number: A-CH2010-34941

PATIENT
  Age: 51 Year
  Sex: Female

DRUGS (8)
  1. TRACLEER [Suspect]
     Indication: MIXED CONNECTIVE TISSUE DISEASE
     Dosage: 125 MG, BID, ORAL ; 62.5 MG, BID, ORAL ; ORAL
     Route: 048
     Dates: start: 20081201, end: 20091001
  2. TRACLEER [Suspect]
     Indication: MIXED CONNECTIVE TISSUE DISEASE
     Dosage: 125 MG, BID, ORAL ; 62.5 MG, BID, ORAL ; ORAL
     Route: 048
     Dates: start: 20091001, end: 20091022
  3. TRACLEER [Suspect]
     Indication: MIXED CONNECTIVE TISSUE DISEASE
     Dosage: 125 MG, BID, ORAL ; 62.5 MG, BID, ORAL ; ORAL
     Route: 048
     Dates: start: 20091117, end: 20091119
  4. NIFEDIPINE [Concomitant]
  5. GAVISCON (SODIUM BICARBONATE) [Concomitant]
  6. MOTILIUM [Concomitant]
  7. LEXOMIL (BROMAZEPAM) [Concomitant]
  8. ILOPROST (ILOPROST) [Concomitant]

REACTIONS (1)
  - HEPATITIS ACUTE [None]
